FAERS Safety Report 12859000 (Version 3)
Quarter: 2017Q2

REPORT INFORMATION
  Report Type: Spontaneous
  Country: DE (occurrence: DE)
  Receive Date: 20161018
  Receipt Date: 20170620
  Transmission Date: 20170830
  Serious: Yes (Death, Hospitalization, Other)
  Sender: FDA-Public Use
  Company Number: DE-ALEXION PHARMACEUTICALS INC-A201607783

PATIENT
  Age: 70 Year

DRUGS (4)
  1. SOLIRIS [Suspect]
     Active Substance: ECULIZUMAB
     Dosage: 900 MG, Q2W
     Route: 042
     Dates: start: 20160419, end: 20160906
  2. SOLIRIS [Suspect]
     Active Substance: ECULIZUMAB
     Dosage: 900 MG, Q2W
     Route: 042
     Dates: start: 20160907, end: 20161017
  3. SOLIRIS [Suspect]
     Active Substance: ECULIZUMAB
     Indication: PAROXYSMAL NOCTURNAL HAEMOGLOBINURIA
     Dosage: 600 MG, QW
     Route: 042
     Dates: start: 20160322, end: 20160412
  4. SOLIRIS [Suspect]
     Active Substance: ECULIZUMAB
     Dosage: 900 MG, Q2W
     Route: 042
     Dates: start: 20161018

REACTIONS (1)
  - Cerebral haemorrhage [Fatal]

NARRATIVE: CASE EVENT DATE: 20160910
